FAERS Safety Report 7475168-3 (Version None)
Quarter: 2011Q2

REPORT INFORMATION
  Report Type: 
  Country: None (occurrence: None)
  Receive Date: 20110512
  Receipt Date: 20110506
  Transmission Date: 20111010
  Serious: Yes (Hospitalization, Other)
  Sender: FDA-Public Use
  Company Number: FR-BRISTOL-MYERS SQUIBB COMPANY-15724487

PATIENT
  Age: 68 Year
  Sex: Male
  Weight: 69 kg

DRUGS (4)
  1. CISPLATIN [Suspect]
     Dosage: LAST DOSE: 28JAN2011
     Route: 065
     Dates: start: 20101124
  2. PEMETREXED DISODIUM [Suspect]
     Dosage: LAST DOSE:04APR2011
     Route: 065
     Dates: start: 20101124
  3. NECITUMUMAB [Suspect]
     Route: 065
     Dates: start: 20101124, end: 20110404
  4. DOXYCYCLINE [Concomitant]

REACTIONS (4)
  - TOXIC SKIN ERUPTION [None]
  - SYNCOPE [None]
  - ANAEMIA [None]
  - RASH MACULO-PAPULAR [None]
